FAERS Safety Report 25028878 (Version 2)
Quarter: 2025Q1

REPORT INFORMATION
  Report Type: Spontaneous
  Country: JP (occurrence: JP)
  Receive Date: 20250302
  Receipt Date: 20250324
  Transmission Date: 20250408
  Serious: No
  Sender: AMGEN
  Company Number: JP-KYOWAKIRIN-2025KK003018

PATIENT
  Age: 8 Decade
  Sex: Male

DRUGS (1)
  1. DARBEPOETIN ALFA [Suspect]
     Active Substance: DARBEPOETIN ALFA
     Indication: Product used for unknown indication
     Dosage: 30 UG, 1X/4 WEEKS
     Route: 065
     Dates: start: 202410, end: 202502

REACTIONS (1)
  - Dialysis [Unknown]
